FAERS Safety Report 18322789 (Version 2)
Quarter: 2020Q4

REPORT INFORMATION
  Report Type: Spontaneous
  Country: IT (occurrence: IT)
  Receive Date: 20200928
  Receipt Date: 20201005
  Transmission Date: 20210113
  Serious: Yes (Other)
  Sender: FDA-Public Use
  Company Number: IT-MYLANLABS-2020M1082275

PATIENT
  Age: 82 Year
  Sex: Female

DRUGS (5)
  1. ALENDRONATE [Suspect]
     Active Substance: ALENDRONATE SODIUM
     Indication: OSTEOPOROSIS
     Dosage: UNK
     Dates: end: 20200908
  2. PROVISACOR [Concomitant]
     Active Substance: ROSUVASTATIN
     Dosage: UNK
  3. OMEPRAZOLE. [Concomitant]
     Active Substance: OMEPRAZOLE
     Dosage: UNK
  4. INSULIN [Concomitant]
     Active Substance: INSULIN NOS
     Dosage: UNK
  5. DELTACORTENE [Concomitant]
     Active Substance: PREDNISONE
     Dosage: UNK

REACTIONS (3)
  - Fistula [Not Recovered/Not Resolved]
  - Device physical property issue [Not Recovered/Not Resolved]
  - Osteonecrosis of jaw [Not Recovered/Not Resolved]

NARRATIVE: CASE EVENT DATE: 20200908
